FAERS Safety Report 24425152 (Version 1)
Quarter: 2024Q4

REPORT INFORMATION
  Report Type: Report from Study
  Country: US (occurrence: US)
  Receive Date: 20241010
  Receipt Date: 20241010
  Transmission Date: 20250114
  Serious: Yes (Other)
  Sender: ABBVIE
  Company Number: US-ABBVIE-5957318

PATIENT
  Age: 29 Year
  Sex: Female
  Weight: 76 kg

DRUGS (3)
  1. RINVOQ [Suspect]
     Active Substance: UPADACITINIB
     Indication: Rheumatoid arthritis
     Route: 048
     Dates: start: 20230725
  2. PREDNISONE [Concomitant]
     Active Substance: PREDNISONE
     Indication: Product used for unknown indication
  3. PLAQUENIL [Concomitant]
     Active Substance: HYDROXYCHLOROQUINE SULFATE
     Indication: Product used for unknown indication

REACTIONS (1)
  - Cholecystectomy [Unknown]

NARRATIVE: CASE EVENT DATE: 20240304
